FAERS Safety Report 8170183-9 (Version None)
Quarter: 2012Q1

REPORT INFORMATION
  Report Type: 
  Country: None (occurrence: None)
  Receive Date: 20120228
  Receipt Date: 20120222
  Transmission Date: 20120608
  Serious: Yes (Hospitalization)
  Sender: FDA-Public Use
  Company Number: PHEH1996US10644

PATIENT
  Age: 56 Year
  Sex: Male

DRUGS (6)
  1. CEFTRIAXONE SODIUM [Concomitant]
  2. DAPSONE [Concomitant]
     Route: 065
  3. NEORAL [Suspect]
     Route: 048
     Dates: start: 19941101
  4. OMEPRAZOLE [Concomitant]
     Route: 065
  5. PREDNISONE TAB [Concomitant]
     Route: 065
  6. DYNACIRC [Concomitant]

REACTIONS (3)
  - CHOLANGITIS [None]
  - PYREXIA [None]
  - SEPSIS [None]
